FAERS Safety Report 6381797-0 (Version None)
Quarter: 2009Q3

REPORT INFORMATION
  Report Type: 
  Country: None (occurrence: None)
  Receive Date: 20090924
  Receipt Date: 20090921
  Transmission Date: 20100115
  Serious: Yes (Hospitalization, Other)
  Sender: FDA-Public Use
  Company Number: GB-EBEWE-1397CARBO09

PATIENT
  Age: 45 Year
  Sex: Male

DRUGS (9)
  1. AVASTIN [Suspect]
     Indication: GLIOBLASTOMA MULTIFORME
     Dosage: 15MG/KG 1/ 3 WEEKS
     Dates: start: 20090721
  2. CARBOPLATIN [Suspect]
     Indication: GLIOBLASTOMA MULTIFORME
     Dosage: 1/3 WEEKS
     Dates: start: 20090721
  3. PHENYTOIN [Suspect]
  4. DEXMETHASONE [Concomitant]
  5. METOCLOPRAMIDE [Concomitant]
  6. NEULASTA [Concomitant]
  7. ONDANSETRON [Concomitant]
  8. VALPROATE SODIUM [Concomitant]
  9. WARFARIN SODIUM [Concomitant]

REACTIONS (7)
  - CONFUSIONAL STATE [None]
  - CYTOKINE STORM [None]
  - DEEP VEIN THROMBOSIS [None]
  - DELIRIUM [None]
  - IMPETIGO [None]
  - PETECHIAE [None]
  - PYREXIA [None]
